FAERS Safety Report 7732778-3 (Version None)
Quarter: 2011Q3

REPORT INFORMATION
  Report Type: 
  Country: None (occurrence: None)
  Receive Date: 20110901
  Receipt Date: 20101007
  Transmission Date: 20111222
  Serious: No
  Sender: FDA-Public Use
  Company Number: M2010-019

PATIENT
  Age: 15 Year
  Sex: Female

DRUGS (2)
  1. MITE DP STD GLY 30,000 AU HOLLIST-STIER [Suspect]
     Indication: ALLERGY PROPHYLAXIS
     Dosage: 0.25 ML SC
     Route: 058
     Dates: start: 20100922
  2. MITE D FARINAE STD GLY 30,000 AU HOLLIST-STIER [Suspect]
     Indication: ALLERGY PROPHYLAXIS
     Dosage: 0.25ML SC
     Route: 058
     Dates: start: 20100922

REACTIONS (1)
  - ANAPHYLACTIC REACTION [None]
